FAERS Safety Report 4307637-9 (Version None)
Quarter: 2004Q1

REPORT INFORMATION
  Report Type: 
  Country: None (occurrence: None)
  Receive Date: 20040227
  Receipt Date: 20040227
  Transmission Date: 20041129
  Serious: Yes (Life-Threatening, Hospitalization)
  Sender: FDA-Public Use
  Company Number: None

PATIENT
  Age: 65 Year
  Sex: Female
  Weight: 108 kg

DRUGS (6)
  1. HEPARIN [Suspect]
     Indication: PULMONARY EMBOLISM
     Dosage: WEIGHT BASED TITRATE TO INTRAVENOUS
     Route: 042
     Dates: start: 20031030, end: 20031101
  2. COZAAR [Concomitant]
  3. METOPROLOL [Concomitant]
  4. FUROSEMIDE [Concomitant]
  5. CITRACAL WITH VITAMIN D [Concomitant]
  6. METRONIDAZOLE [Concomitant]

REACTIONS (2)
  - HAEMOGLOBIN DECREASED [None]
  - HEPARIN-INDUCED THROMBOCYTOPENIA [None]
